FAERS Safety Report 5656244-4 (Version None)
Quarter: 2008Q1

REPORT INFORMATION
  Report Type: 
  Country: None (occurrence: None)
  Receive Date: 20080305
  Receipt Date: 20080213
  Transmission Date: 20080703
  Serious: Yes (Hospitalization)
  Sender: FDA-Public Use
  Company Number: 08H-056-0313847-00

PATIENT
  Age: 45 Year
  Sex: Female

DRUGS (5)
  1. VANCOMYCIN [Suspect]
     Indication: DRUG USE FOR UNKNOWN INDICATION
     Dosage: INTRAVENOUS
     Route: 042
     Dates: start: 20071107, end: 20071115
  2. ZOVIRAX [Suspect]
     Indication: DRUG USE FOR UNKNOWN INDICATION
     Dosage: INTRAVENOUS
     Route: 042
     Dates: start: 20071107
  3. MORPHINE [Suspect]
     Indication: DRUG USE FOR UNKNOWN INDICATION
     Dosage: INTRAVENOUS
     Route: 042
     Dates: start: 20071107, end: 20071111
  4. CIPROFLOXACIN [Suspect]
     Indication: DRUG USE FOR UNKNOWN INDICATION
     Dosage: 200 MG, 3 IN 1 D, INTRAVENOUS
     Route: 042
     Dates: start: 20071109, end: 20071112
  5. TAZOCILLINE (PIP/TAZO) [Suspect]
     Indication: DRUG USE FOR UNKNOWN INDICATION
     Dosage: INTRAVENOUS
     Route: 042
     Dates: start: 20071107

REACTIONS (13)
  - ABDOMINAL PAIN [None]
  - CONDITION AGGRAVATED [None]
  - CONFUSIONAL STATE [None]
  - DELIRIUM [None]
  - DYSPHAGIA [None]
  - EATING DISORDER [None]
  - HALLUCINATION [None]
  - MUCOSAL INFLAMMATION [None]
  - NAUSEA [None]
  - ODYNOPHAGIA [None]
  - REFUSAL OF TREATMENT BY PATIENT [None]
  - SPEECH DISORDER [None]
  - VOMITING [None]
